FAERS Safety Report 6071419-0 (Version None)
Quarter: 2009Q1

REPORT INFORMATION
  Report Type: 
  Country: None (occurrence: None)
  Receive Date: 20090204
  Receipt Date: 20090122
  Transmission Date: 20090719
  Serious: Yes (Other)
  Sender: FDA-Public Use
  Company Number: 2008-182101-NL

PATIENT
  Age: 18 Year
  Sex: Female
  Weight: 74 kg

DRUGS (2)
  1. IMPLANON [Suspect]
     Indication: CONTRACEPTION
     Dosage: SUBCUTANEOUS
     Route: 058
     Dates: start: 20080313, end: 20080814
  2. GARDASIL VACCIN [Concomitant]

REACTIONS (3)
  - DRUG EXPOSURE DURING PREGNANCY [None]
  - PREGNANCY ON CONTRACEPTIVE [None]
  - THROMBOPHLEBITIS [None]
